FAERS Safety Report 14927801 (Version 1)
Quarter: 2018Q2

REPORT INFORMATION
  Report Type: Spontaneous
  Country: FR (occurrence: FR)
  Receive Date: 20180523
  Receipt Date: 20180523
  Transmission Date: 20180711
  Serious: Yes (Hospitalization)
  Sender: FDA-Public Use
  Company Number: FR-ALLERGAN-1827166US

PATIENT
  Age: 44 Year
  Sex: Male
  Weight: 77 kg

DRUGS (2)
  1. ESCITALOPRAM OXALATE - BP [Suspect]
     Active Substance: ESCITALOPRAM OXALATE
     Indication: DEPRESSION
     Dosage: 70 MG, UNK
     Route: 048
     Dates: start: 20180328
  2. NOCTAMIDE [Suspect]
     Active Substance: LORMETAZEPAM
     Indication: DEPRESSION
     Dosage: 14 MG, UNK
     Route: 048
     Dates: start: 20180328

REACTIONS (3)
  - Off label use [Unknown]
  - Somnolence [Recovered/Resolved]
  - Confusional state [Recovered/Resolved]

NARRATIVE: CASE EVENT DATE: 20180328
